FAERS Safety Report 15019724 (Version 1)
Quarter: 2018Q2

REPORT INFORMATION
  Report Type: Spontaneous
  Country: JP (occurrence: JP)
  Receive Date: 20180618
  Receipt Date: 20180618
  Transmission Date: 20180711
  Serious: Yes (Other)
  Sender: FDA-Public Use
  Company Number: JP-ROCHE-2140778

PATIENT
  Age: 70 Year
  Sex: Female

DRUGS (2)
  1. XOLAIR [Suspect]
     Active Substance: OMALIZUMAB
     Indication: ASTHMA
     Dosage: 600 MG, UNK
     Route: 058
     Dates: start: 20180529
  2. XOLAIR [Suspect]
     Active Substance: OMALIZUMAB
     Dosage: 600 MG, UNK
     Route: 058
     Dates: start: 20180612

REACTIONS (3)
  - Lip oedema [Recovered/Resolved]
  - Blood immunoglobulin E increased [Unknown]
  - Hypertension [Unknown]

NARRATIVE: CASE EVENT DATE: 20180529
